FAERS Safety Report 24942707 (Version 1)
Quarter: 2025Q1

REPORT INFORMATION
  Report Type: Spontaneous
  Country: US (occurrence: US)
  Receive Date: 20250207
  Receipt Date: 20250207
  Transmission Date: 20250409
  Serious: No
  Sender: B BRAUN
  Company Number: US-B.Braun Medical Inc.-2170639

PATIENT
  Age: 52 Year
  Sex: Female

DRUGS (2)
  1. CEFOXITIN AND DEXTROSE [Suspect]
     Active Substance: CEFOXITIN SODIUM
     Indication: Infection
  2. OMADACYCLINE [Concomitant]
     Active Substance: OMADACYCLINE

REACTIONS (1)
  - Drug ineffective [Unknown]
